FAERS Safety Report 14338331 (Version 1)
Quarter: 2017Q4

REPORT INFORMATION
  Report Type: Spontaneous
  Country: FR (occurrence: FR)
  Receive Date: 20171229
  Receipt Date: 20171229
  Transmission Date: 20180321
  Serious: Yes (Other)
  Sender: FDA-Public Use
  Company Number: FR-BAYER-2017-246830

PATIENT
  Age: 38 Year
  Sex: Male
  Weight: 68 kg

DRUGS (8)
  1. CETIRIZINE HYDROCHLORIDE. [Concomitant]
     Active Substance: CETIRIZINE HYDROCHLORIDE
  2. IZILOX [Suspect]
     Active Substance: MOXIFLOXACIN HYDROCHLORIDE
     Indication: TUBERCULOSIS
     Dosage: 2 DF, UNK
     Route: 048
     Dates: start: 20151012
  3. LAMPRENE [Suspect]
     Active Substance: CLOFAZIMINE
     Indication: TUBERCULOSIS
     Dosage: 2 DF, UNK
     Route: 048
     Dates: start: 20151012
  4. EUPANTOL [Concomitant]
     Active Substance: PANTOPRAZOLE SODIUM
     Dosage: UNK
  5. SERESTA [Concomitant]
     Active Substance: OXAZEPAM
  6. LINEZOLID. [Suspect]
     Active Substance: LINEZOLID
     Indication: TUBERCULOSIS
     Dosage: 1 DF, UNK
     Route: 048
     Dates: start: 20151012, end: 20171116
  7. LINEZOLID. [Suspect]
     Active Substance: LINEZOLID
     Indication: TUBERCULOSIS
     Dosage: 4 UNK, UNK
  8. LOXAPAC [Concomitant]
     Active Substance: LOXAPINE SUCCINATE

REACTIONS (2)
  - Computerised tomogram thorax abnormal [Not Recovered/Not Resolved]
  - Polyneuropathy [Not Recovered/Not Resolved]

NARRATIVE: CASE EVENT DATE: 20171006
